FAERS Safety Report 5315179-7 (Version None)
Quarter: 2007Q2

REPORT INFORMATION
  Report Type: 
  Country: None (occurrence: None)
  Receive Date: 20070502
  Receipt Date: 20070423
  Transmission Date: 20071010
  Serious: Yes (Hospitalization)
  Sender: FDA-Public Use
  Company Number: US-PFIZER INC-2006000961

PATIENT
  Sex: Male
  Weight: 114.9 kg

DRUGS (14)
  1. SU-011,248 [Suspect]
     Indication: RENAL CELL CARCINOMA STAGE UNSPECIFIED
     Route: 048
  2. MS CONTIN [Concomitant]
     Route: 048
  3. CARDIZEM [Concomitant]
     Route: 048
     Dates: start: 20050401
  4. CELEXA [Concomitant]
     Route: 048
     Dates: start: 20050501
  5. COLACE [Concomitant]
     Route: 048
     Dates: start: 20050101
  6. SENOKOT [Concomitant]
     Route: 048
     Dates: start: 20050501
  7. MILK OF MAGNESIA [Concomitant]
     Route: 048
     Dates: start: 20050301
  8. TUMS [Concomitant]
     Route: 048
     Dates: start: 20050727
  9. COMPAZINE [Concomitant]
     Route: 048
     Dates: start: 20050401
  10. VITAMIN CAP [Concomitant]
     Route: 048
     Dates: start: 20040401
  11. KLONOPIN [Concomitant]
     Route: 048
     Dates: start: 20050601
  12. ADVAIR DISKUS 100/50 [Concomitant]
     Route: 048
     Dates: start: 20041201
  13. LACTULOSE [Concomitant]
     Route: 048
     Dates: start: 20050511
  14. ZOMETA [Concomitant]
     Route: 048
     Dates: start: 20050525

REACTIONS (1)
  - DIVERTICULITIS [None]
